FAERS Safety Report 7098950-3 (Version None)
Quarter: 2010Q4

REPORT INFORMATION
  Report Type: 
  Country: None (occurrence: None)
  Receive Date: 20101112
  Receipt Date: 20101108
  Transmission Date: 20110411
  Serious: Yes (Other)
  Sender: FDA-Public Use
  Company Number: US-ROCHE-740484

PATIENT

DRUGS (1)
  1. ACTEMRA [Suspect]
     Route: 042

REACTIONS (1)
  - RHEUMATOID ARTHRITIS [None]
